FAERS Safety Report 10096604 (Version 1)
Quarter: 2014Q2

REPORT INFORMATION
  Report Type: Spontaneous
  Country: NZ (occurrence: NZ)
  Receive Date: 20140422
  Receipt Date: 20140422
  Transmission Date: 20141212
  Serious: Yes (Other)
  Sender: FDA-Public Use
  Company Number: NZ-MYLANLABS-2014S1008286

PATIENT
  Age: 48 Year
  Sex: Male

DRUGS (1)
  1. ATORVASTATIN [Suspect]
     Indication: HYPERCHOLESTEROLAEMIA
     Dosage: 20MG
     Route: 065

REACTIONS (1)
  - Myasthenia gravis [Recovered/Resolved]
